FAERS Safety Report 6599478-7 (Version None)
Quarter: 2010Q1

REPORT INFORMATION
  Report Type: 
  Country: None (occurrence: None)
  Receive Date: 20100224
  Receipt Date: 20100216
  Transmission Date: 20100710
  Serious: Yes (Hospitalization)
  Sender: FDA-Public Use
  Company Number: IT-BAYER-201016088GPV

PATIENT
  Age: 83 Year
  Sex: Male

DRUGS (4)
  1. ASPIRIN [Suspect]
     Indication: THROMBOSIS PROPHYLAXIS
     Dosage: TOTAL DAILY DOSE: 100 MG
     Route: 048
     Dates: start: 20070101, end: 20091212
  2. NORVASC [Concomitant]
  3. TRIATEC [Concomitant]
  4. COMBISARTAN [Concomitant]

REACTIONS (2)
  - IMPAIRED GASTRIC EMPTYING [None]
  - RECTAL HAEMORRHAGE [None]
